FAERS Safety Report 7464251-4 (Version None)
Quarter: 2011Q2

REPORT INFORMATION
  Report Type: 
  Country: None (occurrence: None)
  Receive Date: 20110506
  Receipt Date: 20090427
  Transmission Date: 20111010
  Serious: Yes (Death, Hospitalization)
  Sender: FDA-Public Use
  Company Number: US-GILEAD-2008-0019355

PATIENT
  Sex: Male

DRUGS (18)
  1. LETAIRIS [Suspect]
     Indication: PULMONARY ARTERIAL HYPERTENSION
     Route: 048
     Dates: start: 20070709
  2. REVATIO [Concomitant]
  3. MEGACE [Concomitant]
  4. FUROSEMIDE [Concomitant]
  5. PRILOSEC [Concomitant]
  6. WARFARIN [Concomitant]
  7. ALDACTONE [Concomitant]
  8. PREDNISONE [Concomitant]
  9. AVELOX [Concomitant]
  10. BUMEX [Concomitant]
  11. VITAMIN D [Concomitant]
  12. REMODULIN [Concomitant]
  13. DIGOXIN [Concomitant]
  14. PRAVASTATIN [Concomitant]
  15. MIDORINE [Concomitant]
  16. PREVACID [Concomitant]
  17. DIFLUCAN [Concomitant]
  18. SYNTHROID [Concomitant]

REACTIONS (4)
  - ANAEMIA [None]
  - OESOPHAGEAL VARICES HAEMORRHAGE [None]
  - LIVER DISORDER [None]
  - PORTAL VEIN THROMBOSIS [None]
